FAERS Safety Report 8099153-6 (Version None)
Quarter: 2012Q1

REPORT INFORMATION
  Report Type: 
  Country: None (occurrence: None)
  Receive Date: 20120129
  Receipt Date: 20111004
  Transmission Date: 20120608
  Serious: No
  Sender: FDA-Public Use
  Company Number: US-ABBOTT-11P-163-0860867-00

PATIENT
  Age: 45 Year
  Sex: Female

DRUGS (10)
  1. EYE DROPS [Concomitant]
     Indication: DRY EYE
  2. AZATHIOPRINE [Concomitant]
     Indication: PRODUCT USED FOR UNKNOWN INDICATION
  3. CALCIUM CITRATE [Concomitant]
     Indication: PRODUCT USED FOR UNKNOWN INDICATION
  4. CREON [Concomitant]
     Indication: PRODUCT USED FOR UNKNOWN INDICATION
  5. SPIRONOLACTONE [Concomitant]
     Indication: PRODUCT USED FOR UNKNOWN INDICATION
  6. LEVOTHYROXINE SODIUM [Concomitant]
     Indication: PRODUCT USED FOR UNKNOWN INDICATION
  7. K-CHLOR [Concomitant]
     Indication: PRODUCT USED FOR UNKNOWN INDICATION
     Dosage: 2 TABS TWICE A DAY
  8. VIT A 30000 [Concomitant]
     Indication: PRODUCT USED FOR UNKNOWN INDICATION
     Dosage: DAILY
  9. HUMIRA [Suspect]
     Indication: CROHN'S DISEASE
     Dates: start: 20110826
  10. SLOW MG [Concomitant]
     Indication: PRODUCT USED FOR UNKNOWN INDICATION

REACTIONS (7)
  - VOMITING [None]
  - MALAISE [None]
  - CONSTIPATION [None]
  - FATIGUE [None]
  - DIZZINESS [None]
  - SOMNOLENCE [None]
  - ABDOMINAL PAIN [None]
